FAERS Safety Report 8913987 (Version 2)
Quarter: 2012Q4

REPORT INFORMATION
  Report Type: 
  Country: JP (occurrence: JP)
  Receive Date: 20121119
  Receipt Date: 20121207
  Transmission Date: 20130627
  Serious: No
  Sender: FDA-Public Use
  Company Number: JP-ELI_LILLY_AND_COMPANY-JP201211002642

PATIENT
  Age: 74 Year
  Sex: Male

DRUGS (1)
  1. HUMALOG 25% LISPRO, 75% NPL [Suspect]
     Indication: TYPE 2 DIABETES MELLITUS
     Dosage: UNK UNK, bid
     Route: 058
     Dates: start: 2011

REACTIONS (4)
  - Glycosylated haemoglobin increased [Unknown]
  - Hypoglycaemia [Recovered/Resolved]
  - Anti-insulin antibody positive [Unknown]
  - Blood insulin increased [Unknown]
